FAERS Safety Report 4626800-0 (Version None)
Quarter: 2005Q2

REPORT INFORMATION
  Report Type: 
  Country: None (occurrence: None)
  Receive Date: 20050401
  Receipt Date: 20050401
  Transmission Date: 20051028
  Serious: Yes (Hospitalization)
  Sender: FDA-Public Use
  Company Number: None

PATIENT
  Age: 55 Year
  Weight: 60 kg

DRUGS (3)
  1. OXALIPLATIN 82.5 MG IV Q WEEK [Suspect]
     Indication: RECTAL CANCER
     Dosage: OXALIPLATIN
     Dates: start: 20050104, end: 20050111
  2. OXALIPLATIN 82.5 MG IV Q WEEK [Suspect]
     Indication: RECTAL CANCER
     Dosage: OXALIPLATIN
     Dates: start: 20051118
  3. CAPECITABINE 1150 MG. P.O. B.I.D. [Suspect]
     Indication: RECTAL CANCER
     Dosage: CAPECITABINE
     Dates: start: 20050104, end: 20050121

REACTIONS (7)
  - CONFUSIONAL STATE [None]
  - ENTERITIS [None]
  - GASTROINTESTINAL DISORDER [None]
  - INFECTION [None]
  - RADIATION INJURY [None]
  - SEPSIS [None]
  - SMALL INTESTINAL OBSTRUCTION [None]
